FAERS Safety Report 20994663 (Version 1)
Quarter: 2022Q2

REPORT INFORMATION
  Report Type: Spontaneous
  Country: SE (occurrence: SE)
  Receive Date: 20220622
  Receipt Date: 20220622
  Transmission Date: 20220721
  Serious: Yes (Disabling)
  Sender: FDA-Public Use
  Company Number: None

PATIENT
  Age: 58 Year
  Sex: Male
  Weight: 150 kg

DRUGS (3)
  1. CANDESARTAN [Suspect]
     Active Substance: CANDESARTAN
     Indication: Hypertension
     Dosage: 32 MILLIGRAM, QD (32 MG 1 TABLET DAY)
     Route: 048
     Dates: start: 20190619, end: 20220609
  2. ALPRAZOLAM [Concomitant]
     Active Substance: ALPRAZOLAM
     Dosage: 0.25 MILLIGRAM (0.25 MG 1 TABLET MAXIMUM 5 TIMES/DAY 0.25 MG)
     Route: 048
     Dates: start: 20000101
  3. RITALIN [Concomitant]
     Active Substance: METHYLPHENIDATE HYDROCHLORIDE
     Dosage: 10 MILLIGRAM (10 MG 5 TIMES/DAYX2 TABLETS)
     Route: 048
     Dates: start: 20050505

REACTIONS (2)
  - Hypoaesthesia [Unknown]
  - Abdominal pain [Recovering/Resolving]

NARRATIVE: CASE EVENT DATE: 20190630
